FAERS Safety Report 17413603 (Version 2)
Quarter: 2020Q1

REPORT INFORMATION
  Report Type: Report from Study
  Country: CA (occurrence: CA)
  Receive Date: 20200213
  Receipt Date: 20200306
  Transmission Date: 20200409
  Serious: Yes (Other)
  Sender: FDA-Public Use
  Company Number: NVSC2019CA080916

PATIENT
  Age: 57 Year
  Sex: Female

DRUGS (2)
  1. ERELZI [Suspect]
     Active Substance: ETANERCEPT-SZZS
     Indication: PSORIATIC ARTHROPATHY
     Dosage: 50 MG, QW
     Route: 058
     Dates: start: 20191112
  2. ERELZI [Suspect]
     Active Substance: ETANERCEPT-SZZS
     Dosage: UNK UNK, UNKNOWN
     Route: 058
     Dates: start: 20200128

REACTIONS (11)
  - Streptococcal infection [Unknown]
  - Haemochromatosis [Unknown]
  - Drug hypersensitivity [Unknown]
  - Drug ineffective [Unknown]
  - Rash pustular [Unknown]
  - Infective tenosynovitis [Recovering/Resolving]
  - Pain [Unknown]
  - Dyshidrotic eczema [Not Recovered/Not Resolved]
  - Peripheral swelling [Unknown]
  - Psoriasis [Unknown]
  - Erythema [Unknown]

NARRATIVE: CASE EVENT DATE: 202001
